FAERS Safety Report 4655432-3 (Version None)
Quarter: 2005Q2

REPORT INFORMATION
  Report Type: 
  Country: None (occurrence: None)
  Receive Date: 20050505
  Receipt Date: 20050421
  Transmission Date: 20051028
  Serious: Yes (Hospitalization)
  Sender: FDA-Public Use
  Company Number: US015125

PATIENT
  Age: 53 Year
  Sex: Female
  Weight: 39.9165 kg

DRUGS (9)
  1. GABITRIL [Suspect]
     Indication: NEUROPATHIC PAIN
     Dosage: 4 MG BID ORAL
     Route: 048
     Dates: start: 20040601, end: 20050220
  2. GABITRIL [Suspect]
     Indication: RADICULOPATHY
     Dosage: 4 MG BID ORAL
     Route: 048
     Dates: start: 20040601, end: 20050220
  3. GABITRIL [Suspect]
     Indication: NEUROPATHIC PAIN
     Dosage: 12 MG Q12HR ORAL
     Route: 048
     Dates: start: 20050221, end: 20050401
  4. GABITRIL [Suspect]
     Indication: RADICULOPATHY
     Dosage: 12 MG Q12HR ORAL
     Route: 048
     Dates: start: 20050221, end: 20050401
  5. LEXAPRO [Concomitant]
  6. PROVIGIL [Concomitant]
  7. METHADONE HCL [Concomitant]
  8. HYDROCODONE BITARTRATE [Concomitant]
  9. SKELAXIN [Concomitant]

REACTIONS (4)
  - ARRHYTHMIA [None]
  - BLOOD POTASSIUM DECREASED [None]
  - DEPRESSED LEVEL OF CONSCIOUSNESS [None]
  - DRUG EFFECT DECREASED [None]
